FAERS Safety Report 25670141 (Version 1)
Quarter: 2025Q3

REPORT INFORMATION
  Report Type: Spontaneous
  Country: US (occurrence: US)
  Receive Date: 20250812
  Receipt Date: 20250812
  Transmission Date: 20251020
  Serious: No
  Sender: MERCK SHARP & DOHME LLC
  Company Number: US-009507513-2318055

PATIENT
  Age: 51 Year
  Sex: Female

DRUGS (2)
  1. PEMBROLIZUMAB [Suspect]
     Active Substance: PEMBROLIZUMAB
  2. IBRUTINIB [Concomitant]
     Active Substance: IBRUTINIB
     Indication: Gastrooesophageal cancer

REACTIONS (1)
  - Product use issue [Unknown]
